FAERS Safety Report 9526320 (Version 2)
Quarter: 2013Q3

REPORT INFORMATION
  Report Type: Spontaneous
  Country: JP (occurrence: JP)
  Receive Date: 20130916
  Receipt Date: 20130930
  Transmission Date: 20140515
  Serious: Yes (Other)
  Sender: FDA-Public Use
  Company Number: JP-BRISTOL-MYERS SQUIBB COMPANY-19360759

PATIENT
  Age: 68 Year
  Sex: Male

DRUGS (5)
  1. ERBITUX SOLN FOR INF 5MG/ML [Suspect]
     Indication: COLORECTAL CANCER
     Route: 041
  2. IRINOTECAN [Suspect]
     Indication: COLORECTAL CANCER
     Route: 041
  3. CALCIUM FOLINATE [Suspect]
     Indication: COLORECTAL CANCER
     Route: 048
  4. FLUOROURACIL [Suspect]
     Indication: COLORECTAL CANCER
     Route: 041
  5. URACIL [Concomitant]
     Indication: COLORECTAL CANCER
     Route: 048
     Dates: start: 20130304

REACTIONS (1)
  - Bone marrow failure [Recovered/Resolved]
